FAERS Safety Report 18513049 (Version 1)
Quarter: 2020Q4

REPORT INFORMATION
  Report Type: Spontaneous
  Country: FR (occurrence: FR)
  Receive Date: 20201117
  Receipt Date: 20201117
  Transmission Date: 20210114
  Serious: Yes (Death, Other)
  Sender: FDA-Public Use
  Company Number: FR-AMGEN-FRASP2020183097

PATIENT
  Age: 57 Year

DRUGS (2)
  1. BLINATUMOMAB [Suspect]
     Active Substance: BLINATUMOMAB
     Indication: B PRECURSOR TYPE ACUTE LEUKAEMIA
     Dosage: UNK
     Route: 065
  2. PONATINIB [Concomitant]
     Active Substance: PONATINIB
     Indication: B PRECURSOR TYPE ACUTE LEUKAEMIA
     Dosage: 45 MILLIGRAM, QD

REACTIONS (3)
  - Bacterial infection [Fatal]
  - B precursor type acute leukaemia [Unknown]
  - Fungal infection [Fatal]
